FAERS Safety Report 18616969 (Version 6)
Quarter: 2024Q3

REPORT INFORMATION
  Report Type: Report from Study
  Country: US (occurrence: US)
  Receive Date: 20201215
  Receipt Date: 20240807
  Transmission Date: 20241017
  Serious: Yes (Hospitalization)
  Sender: TAKEDA
  Company Number: US-TAKEDA-US201933808

PATIENT
  Age: 57 Year
  Sex: Female

DRUGS (13)
  1. ECALLANTIDE [Suspect]
     Active Substance: ECALLANTIDE
     Indication: Hereditary angioedema
     Dosage: 30 MILLIGRAM
     Route: 042
     Dates: start: 20120402
  2. ECALLANTIDE [Suspect]
     Active Substance: ECALLANTIDE
     Dosage: 300 MILLIGRAM
     Route: 058
  3. ECALLANTIDE [Suspect]
     Active Substance: ECALLANTIDE
     Dosage: 30 MILLIGRAM
     Route: 042
     Dates: start: 20130403
  4. ECALLANTIDE [Suspect]
     Active Substance: ECALLANTIDE
     Dosage: 30 MILLIGRAM
     Route: 058
  5. FIRAZYR [Suspect]
     Active Substance: ICATIBANT ACETATE
     Indication: Hereditary angioedema
     Dosage: 30 MILLIGRAM
     Route: 058
     Dates: start: 20120418
  6. FIRAZYR [Suspect]
     Active Substance: ICATIBANT ACETATE
     Indication: Hereditary angioedema
     Dosage: 30 MILLIGRAM
     Route: 058
     Dates: start: 20120418
  7. FIRAZYR [Suspect]
     Active Substance: ICATIBANT ACETATE
     Dosage: 30 MILLIGRAM
     Route: 065
  8. FIRAZYR [Suspect]
     Active Substance: ICATIBANT ACETATE
     Dosage: 30 MILLIGRAM
     Route: 065
  9. FIRAZYR [Suspect]
     Active Substance: ICATIBANT ACETATE
     Dosage: 300 MILLIGRAM
     Route: 058
     Dates: start: 20130404
  10. FIRAZYR [Suspect]
     Active Substance: ICATIBANT ACETATE
     Dosage: 300 MILLIGRAM
     Route: 058
     Dates: start: 20130404
  11. TAKHZYRO [Suspect]
     Active Substance: LANADELUMAB-FLYO
     Indication: Hereditary angioedema
     Dosage: UNK UNK, Q2WEEKS
     Route: 058
     Dates: start: 20221027
  12. TAKHZYRO [Suspect]
     Active Substance: LANADELUMAB-FLYO
     Indication: Hereditary angioedema
     Dosage: UNK UNK, Q2WEEKS
     Route: 058
     Dates: start: 20221027
  13. TAKHZYRO [Suspect]
     Active Substance: LANADELUMAB-FLYO
     Indication: Hereditary angioedema
     Dosage: UNK UNK, Q2WEEKS
     Route: 058
     Dates: start: 20221027

REACTIONS (1)
  - Hereditary angioedema [Recovered/Resolved]

NARRATIVE: CASE EVENT DATE: 20190916
